FAERS Safety Report 9501160 (Version 1)
Quarter: 2013Q1

REPORT INFORMATION
  Report Type: Spontaneous
  Country: US (occurrence: None)
  Receive Date: 20130118
  Receipt Date: 20130118
  Transmission Date: 20140127
  Serious: No
  Sender: FDA-Public Use
  Company Number: A-NJ2011-58275

PATIENT
  Age: 51 Year
  Sex: Female
  Weight: 61.2 kg

DRUGS (6)
  1. TRACLEER [Suspect]
     Indication: PULMONARY ARTERIAL HYPERTENSION
     Route: 048
     Dates: start: 20051222, end: 20111022
  2. COUMADIN (WARFARIN SODIUM) [Concomitant]
  3. LASIX (FUROSEMIDE) [Concomitant]
  4. DIGOXIN (DIGOXIN) [Concomitant]
  5. CARDIZEM (DILTIAZEM) [Concomitant]
  6. AMIODARONE (AMIODARONE) [Concomitant]

REACTIONS (3)
  - Liver function test abnormal [None]
  - Aspartate aminotransferase increased [None]
  - Alanine aminotransferase increased [None]
